FAERS Safety Report 17263328 (Version 2)
Quarter: 2020Q1

REPORT INFORMATION
  Report Type: Spontaneous
  Country: GR (occurrence: GR)
  Receive Date: 20200113
  Receipt Date: 20200131
  Transmission Date: 20200409
  Serious: Yes (Other)
  Sender: FDA-Public Use
  Company Number: GR-BAXTER-2020BAX000586

PATIENT
  Age: 67 Year
  Sex: Female

DRUGS (5)
  1. DEXAMETHASONE. [Concomitant]
     Active Substance: DEXAMETHASONE
     Indication: BING-NEEL SYNDROME
     Dosage: SYSTEMIC CHEMOTHERAPY WITH HYPER CVAD
     Route: 065
  2. METHOTREXATE SODIUM. [Concomitant]
     Active Substance: METHOTREXATE SODIUM
     Indication: BING-NEEL SYNDROME
     Route: 037
  3. CYCLOPHOSPHAMIDE. [Concomitant]
     Active Substance: CYCLOPHOSPHAMIDE
     Indication: BING-NEEL SYNDROME
     Dosage: SYSTEMIC CHEMOTHERAPY WITH HYPER CVAD
     Route: 065
  4. DOXIL [Suspect]
     Active Substance: DOXORUBICIN HYDROCHLORIDE
     Indication: PRODUCT USED FOR UNKNOWN INDICATION
     Route: 042
  5. VINCRISTINE [Concomitant]
     Active Substance: VINCRISTINE
     Indication: BING-NEEL SYNDROME
     Dosage: SYSTEMIC CHEMOTHERAPY WITH HYPER CVAD
     Route: 065

REACTIONS (2)
  - Diarrhoea [Unknown]
  - Febrile neutropenia [Recovered/Resolved]
